FAERS Safety Report 12938569 (Version 1)
Quarter: 2016Q4

REPORT INFORMATION
  Report Type: Report from Study
  Country: US (occurrence: US)
  Receive Date: 20161114
  Receipt Date: 20161114
  Transmission Date: 20170207
  Serious: Yes (Hospitalization)
  Sender: FDA-Public Use
  Company Number: US-MYLANLABS-2016M1046131

PATIENT

DRUGS (1)
  1. CLOZAPINE. [Suspect]
     Active Substance: CLOZAPINE
     Indication: PRODUCT USED FOR UNKNOWN INDICATION
     Dosage: 12.5 MG, QD

REACTIONS (4)
  - Encephalopathy [Unknown]
  - Fall [Unknown]
  - Urinary tract infection [Unknown]
  - Hip fracture [Unknown]

NARRATIVE: CASE EVENT DATE: 20161023
